FAERS Safety Report 10764215 (Version 1)
Quarter: 2015Q1

REPORT INFORMATION
  Report Type: Spontaneous
  Country: US (occurrence: US)
  Receive Date: 20150205
  Receipt Date: 20150205
  Transmission Date: 20150721
  Serious: Yes (Other)
  Sender: FDA-Public Use
  Company Number: US-ROCHE-1532178

PATIENT
  Age: 55 Year
  Sex: Female
  Weight: 118.04 kg

DRUGS (1)
  1. NUTROPIN [Suspect]
     Active Substance: SOMATROPIN
     Indication: DWARFISM
     Route: 058
     Dates: start: 201006

REACTIONS (7)
  - Weight decreased [Unknown]
  - Headache [Unknown]
  - Anaphylactic shock [Recovered/Resolved]
  - Decreased appetite [Unknown]
  - Insomnia [Unknown]
  - Cough [Unknown]
  - Dysphagia [Unknown]

NARRATIVE: CASE EVENT DATE: 201501
